FAERS Safety Report 18385120 (Version 7)
Quarter: 2020Q4

REPORT INFORMATION
  Report Type: Report from Study
  Country: IL (occurrence: IL)
  Receive Date: 20201014
  Receipt Date: 20201222
  Transmission Date: 20210114
  Serious: Yes (Hospitalization)
  Sender: FDA-Public Use
  Company Number: IL-ROCHE-2683149

PATIENT
  Age: 61 Year
  Sex: Male
  Weight: 63 kg

DRUGS (41)
  1. NEUPOGEN [Concomitant]
     Active Substance: FILGRASTIM
     Indication: NEUTROPENIA
     Dates: start: 20200206
  2. CARDILOC [Concomitant]
     Active Substance: BISOPROLOL FUMARATE
     Dates: start: 20200920, end: 20200925
  3. GARAMYCIN [Concomitant]
     Active Substance: GENTAMICIN SULFATE
     Indication: INFECTION
     Dates: start: 20200930, end: 20200930
  4. GARAMYCIN [Concomitant]
     Active Substance: GENTAMICIN SULFATE
     Dates: start: 20201012, end: 20201013
  5. AMPICILLIN [Concomitant]
     Active Substance: AMPICILLIN
     Indication: INFECTION
     Dates: start: 20201013, end: 20201014
  6. NOCTURNO [Concomitant]
     Indication: INSOMNIA
     Dates: start: 20201013
  7. PREDNISON [Concomitant]
     Active Substance: PREDNISONE
     Indication: AMYLASE INCREASED
     Route: 048
     Dates: start: 20200401
  8. CRESTOR [Concomitant]
     Active Substance: ROSUVASTATIN CALCIUM
     Indication: HYPERLIPIDAEMIA
  9. BONDORMIN [Concomitant]
     Active Substance: BROTIZOLAM
     Indication: INSOMNIA
     Dates: start: 20200920, end: 20201012
  10. BONDORMIN [Concomitant]
     Active Substance: BROTIZOLAM
     Dates: start: 20201122
  11. ETOPAN [Concomitant]
     Active Substance: ETODOLAC
     Dates: start: 20201011, end: 20201013
  12. ROCEPHIN [Concomitant]
     Active Substance: CEFTRIAXONE SODIUM
     Indication: INFECTION
     Dates: start: 20200920, end: 20200929
  13. EMEND [Concomitant]
     Active Substance: APREPITANT
     Indication: PREMEDICATION
     Dates: start: 20200123
  14. ZATO [Concomitant]
     Indication: PYREXIA
     Dates: start: 20200915, end: 20200919
  15. ZALDIAR [Concomitant]
     Active Substance: ACETAMINOPHEN\TRAMADOL HYDROCHLORIDE
     Dates: start: 20200930, end: 20201009
  16. ATEZOLIZUMAB. [Suspect]
     Active Substance: ATEZOLIZUMAB
     Indication: NON-SMALL CELL LUNG CANCER
     Dosage: DATE OF MOST RECENT DOSE OPEN LABEL ATEZOLIZUMAB PRIOR TO AE/SAE ONSET WAS 1200 MG ON 27/AUG/2020
     Route: 041
     Dates: start: 20200716
  17. FLAGYL [Concomitant]
     Active Substance: METRONIDAZOLE\METRONIDAZOLE HYDROCHLORIDE
     Indication: INFECTION
     Dates: start: 20200920, end: 20200929
  18. TRAMADEX [Concomitant]
     Active Substance: TRAMADOL
     Dates: start: 20200920, end: 20200922
  19. TRAMADEX [Concomitant]
     Active Substance: TRAMADOL
     Dates: start: 20201010
  20. NAB-PACLITAXEL [Suspect]
     Active Substance: PACLITAXEL
     Indication: NON-SMALL CELL LUNG CANCER
     Dosage: DATE OF MOST RECENT DOSE ATEZOLIZUMAB PRIOR TO AE/SAE: 22/APR/2020?MOST RECENT DOSE OF NAB-PACLITAXE
     Route: 042
     Dates: start: 20200123
  21. TRAMADOL. [Concomitant]
     Active Substance: TRAMADOL
     Dates: start: 20201014
  22. LIDOCAINE. [Concomitant]
     Active Substance: LIDOCAINE
     Dates: start: 20201125, end: 20201126
  23. ZINNAT [Concomitant]
     Active Substance: CEFUROXIME
     Indication: PYREXIA
  24. CODICAL [Concomitant]
     Active Substance: CODEINE PHOSPHATE
     Indication: COUGH
     Dates: start: 20200922, end: 20201001
  25. ZALDIAR [Concomitant]
     Active Substance: ACETAMINOPHEN\TRAMADOL HYDROCHLORIDE
     Dates: start: 20201011, end: 20201013
  26. BLINDED ATEZOLIZUMAB [Suspect]
     Active Substance: ATEZOLIZUMAB
     Indication: NON-SMALL CELL LUNG CANCER
     Dosage: DATE OF MOST RECENT  DOSE ATEZOLIZUMAB PRIOR TO AE/SAE ONSET: 22/APR/2020
     Route: 041
     Dates: start: 20200123
  27. ZINNAT [Concomitant]
     Active Substance: CEFUROXIME
     Indication: COUGH
     Dates: start: 20200915, end: 20200919
  28. TRAMADOL. [Concomitant]
     Active Substance: TRAMADOL
     Dates: start: 20200920, end: 20200922
  29. TRAMADOL. [Concomitant]
     Active Substance: TRAMADOL
     Dates: start: 20200929, end: 20200929
  30. CIPROXIN [Concomitant]
     Active Substance: CIPROFLOXACIN
     Indication: INFECTION
     Dates: start: 20201010
  31. MICROPIRIN [Concomitant]
     Active Substance: ASPIRIN
     Indication: PROPHYLAXIS
     Dates: start: 20201011
  32. CARBOPLATIN. [Suspect]
     Active Substance: CARBOPLATIN
     Indication: NON-SMALL CELL LUNG CANCER
     Dosage: DATE OF MOST RECENT DOSE (686 MG) OF CARBOPLATIN PRIOR TO SAE ONSET: 22/APR/2020?DOSE OF CARBOPLATIN
     Route: 042
     Dates: start: 20200123
  33. ADVIL [Concomitant]
     Active Substance: IBUPROFEN
     Indication: ARTHRALGIA
     Dates: start: 20200129
  34. AKYNZEO [Concomitant]
     Active Substance: NETUPITANT\PALONOSETRON HYDROCHLORIDE
     Indication: PREMEDICATION
     Dates: start: 20200123
  35. ZATO [Concomitant]
     Indication: COUGH
  36. OPTALGIN [Concomitant]
     Active Substance: METAMIZOLE
     Dosage: PAIN CONTROL
     Dates: start: 20200920
  37. CLEXANE [Concomitant]
     Active Substance: ENOXAPARIN SODIUM
     Indication: PROPHYLAXIS
     Dates: start: 20200921, end: 20200924
  38. LIDOCAINE. [Concomitant]
     Active Substance: LIDOCAINE
     Indication: ANAESTHESIA
     Dates: start: 20200922, end: 20201001
  39. DIPYRONE [Concomitant]
     Active Substance: DIPYRONE
     Dates: start: 20200929, end: 20200929
  40. FOLEX [Concomitant]
     Indication: ANAEMIA
     Dates: start: 20201013
  41. MOXYPEN [Concomitant]
     Active Substance: AMOXICILLIN
     Indication: INFECTION
     Dates: start: 20201014

REACTIONS (2)
  - Fistula [Not Recovered/Not Resolved]
  - Empyema [Not Recovered/Not Resolved]

NARRATIVE: CASE EVENT DATE: 20200919
